FAERS Safety Report 8925754 (Version 1)
Quarter: 2012Q4

REPORT INFORMATION
  Report Type: 
  Country: IR (occurrence: IR)
  Receive Date: 20121126
  Receipt Date: 20121126
  Transmission Date: 20130627
  Serious: Yes (Other)
  Sender: FDA-Public Use
  Company Number: IR-ASTRAZENECA-2012SE86479

PATIENT
  Age: 30 Year
  Sex: Male

DRUGS (5)
  1. QUETIAPINE [Suspect]
     Indication: SCHIZOPHRENIA, PARANOID TYPE
     Route: 048
  2. QUETIAPINE [Suspect]
     Indication: SCHIZOPHRENIA, PARANOID TYPE
     Route: 048
  3. QUETIAPINE [Suspect]
     Indication: SCHIZOPHRENIA, PARANOID TYPE
     Route: 048
  4. SODIUM VALPROATE [Concomitant]
     Indication: PSYCHOTIC DISORDER
  5. LITHIUM [Concomitant]
     Indication: PSYCHOTIC DISORDER

REACTIONS (3)
  - Intentional drug misuse [Recovering/Resolving]
  - Priapism [Recovering/Resolving]
  - Psychotic disorder [Unknown]
